FAERS Safety Report 7684868-1 (Version None)
Quarter: 2011Q3

REPORT INFORMATION
  Report Type: 
  Country: None (occurrence: None)
  Receive Date: 20110810
  Receipt Date: 20110801
  Transmission Date: 20111222
  Serious: Yes (Hospitalization)
  Sender: FDA-Public Use
  Company Number: 2006-137976-NL

PATIENT
  Age: 38 Year
  Sex: Female
  Weight: 54.4 kg

DRUGS (3)
  1. NUVARING [Suspect]
     Indication: MENSTRUATION IRREGULAR
     Dosage: VAG
     Route: 067
     Dates: start: 20040201, end: 20051001
  2. NUVARING [Suspect]
     Indication: CONTRACEPTION
     Dosage: VAG
     Route: 067
     Dates: start: 20040201, end: 20051001
  3. TYLENOL-500 [Concomitant]

REACTIONS (9)
  - ATRIAL FIBRILLATION [None]
  - JAUNDICE [None]
  - TRANSIENT ISCHAEMIC ATTACK [None]
  - MATERNAL EXPOSURE BEFORE PREGNANCY [None]
  - BODY TEMPERATURE DECREASED [None]
  - PREGNANCY [None]
  - CEREBROVASCULAR ACCIDENT [None]
  - ABORTION MISSED [None]
  - BODY TEMPERATURE INCREASED [None]
